FAERS Safety Report 8065497-7 (Version None)
Quarter: 2012Q1

REPORT INFORMATION
  Report Type: 
  Country: None (occurrence: None)
  Receive Date: 20120124
  Receipt Date: 20120116
  Transmission Date: 20120608
  Serious: Yes (Death)
  Sender: FDA-Public Use
  Company Number: US-ROXANE LABORATORIES, INC.-2012-EU-00396GD

PATIENT
  Age: 29 Year
  Sex: Male

DRUGS (1)
  1. MORPHINE [Suspect]
     Route: 048

REACTIONS (1)
  - DRUG ABUSE [None]
